FAERS Safety Report 8274837-5 (Version None)
Quarter: 2012Q2

REPORT INFORMATION
  Report Type: 
  Country: None (occurrence: None)
  Receive Date: 20120411
  Receipt Date: 20120330
  Transmission Date: 20120825
  Serious: Yes (Hospitalization)
  Sender: FDA-Public Use
  Company Number: GB-TEVA-331066ISR

PATIENT
  Age: 71 Year
  Sex: Female
  Weight: 75 kg

DRUGS (9)
  1. RAMIPRIL [Concomitant]
  2. TAMOXIFEN CITRATE [Suspect]
     Indication: BREAST CANCER
     Route: 048
     Dates: end: 20120305
  3. PRIMIDONE [Concomitant]
  4. ASPIRIN [Concomitant]
  5. RISPERIDONE [Suspect]
     Route: 048
  6. LEVETIRACETAM [Concomitant]
  7. CARBAMAZEPINE [Suspect]
     Indication: EPILEPSY
     Route: 048
  8. SIMVASTATIN [Concomitant]
  9. FOLIC ACID [Concomitant]

REACTIONS (2)
  - PYREXIA [None]
  - NEUTROPENIA [None]
